FAERS Safety Report 11902132 (Version 20)
Quarter: 2020Q1

REPORT INFORMATION
  Report Type: Report from Study
  Country: US (occurrence: US)
  Receive Date: 20160108
  Receipt Date: 20200302
  Transmission Date: 20200409
  Serious: Yes (Death, Hospitalization, Other)
  Sender: FDA-Public Use
  Company Number: US-ACTELION-A-NJ2015-115041

PATIENT
  Age: 77 Year
  Sex: Female
  Weight: 78.46 kg

DRUGS (5)
  1. REVATIO [Suspect]
     Active Substance: SILDENAFIL CITRATE
     Indication: PRODUCT USED FOR UNKNOWN INDICATION
     Dosage: UNK
     Route: 065
  2. PREDNISONE. [Concomitant]
     Active Substance: PREDNISONE
     Dosage: UNK
     Dates: start: 20140703
  3. MORPHINE [Concomitant]
     Active Substance: MORPHINE
  4. OPSUMIT [Suspect]
     Active Substance: MACITENTAN
     Indication: PULMONARY ARTERIAL HYPERTENSION
     Dosage: 10 MG, QD
     Route: 048
     Dates: start: 20150213, end: 20200115
  5. MYCOPHENOLATE [Concomitant]
     Active Substance: MYCOPHENOLIC ACID
     Dosage: UNK

REACTIONS (45)
  - Hepatic cancer [Recovered/Resolved]
  - Abdominal pain [Not Recovered/Not Resolved]
  - Pulmonary mass [Not Recovered/Not Resolved]
  - Ear infection [Unknown]
  - Hypoxia [Recovered/Resolved with Sequelae]
  - Flushing [Unknown]
  - Ill-defined disorder [Not Recovered/Not Resolved]
  - Prolapse repair [Recovered/Resolved]
  - Syncope [Recovered/Resolved]
  - Condition aggravated [Recovering/Resolving]
  - Localised oedema [Not Recovered/Not Resolved]
  - Swelling [Unknown]
  - Osteoporosis [Recovered/Resolved]
  - Fall [Not Recovered/Not Resolved]
  - Sinus disorder [Recovered/Resolved]
  - Hepatic lesion [Not Recovered/Not Resolved]
  - Lymphadenopathy [Not Recovered/Not Resolved]
  - Hospitalisation [Unknown]
  - Sinusitis [Unknown]
  - Blood creatinine increased [Recovered/Resolved]
  - Pain [Recovered/Resolved]
  - Basal cell carcinoma [Recovered/Resolved]
  - Malaise [Unknown]
  - Fluid overload [Not Recovered/Not Resolved]
  - Brain natriuretic peptide increased [Recovering/Resolving]
  - Skin laceration [Recovered/Resolved]
  - Death [Fatal]
  - Pulmonary arterial hypertension [Unknown]
  - Oxygen saturation decreased [Unknown]
  - Oedema peripheral [Not Recovered/Not Resolved]
  - Uterovaginal prolapse [Recovered/Resolved]
  - Loss of consciousness [Unknown]
  - Fluid retention [Not Recovered/Not Resolved]
  - Dyspnoea [Recovered/Resolved with Sequelae]
  - Tremor [Recovered/Resolved]
  - Anaemia [Recovered/Resolved]
  - Arthralgia [Recovered/Resolved]
  - Metastatic neoplasm [Not Recovered/Not Resolved]
  - Malignant ascites [Not Recovered/Not Resolved]
  - Feeling abnormal [Unknown]
  - Renal tubular necrosis [Recovered/Resolved]
  - Contusion [Recovered/Resolved]
  - Oedema [Not Recovered/Not Resolved]
  - Hypervitaminosis [Recovered/Resolved]
  - Sleep apnoea syndrome [Recovered/Resolved]

NARRATIVE: CASE EVENT DATE: 20150222
